FAERS Safety Report 25574130 (Version 1)
Quarter: 2025Q3

REPORT INFORMATION
  Report Type: Spontaneous
  Country: EU (occurrence: EU)
  Receive Date: 20250717
  Receipt Date: 20250717
  Transmission Date: 20251021
  Serious: Yes (Hospitalization, Other)
  Sender: SANDOZ
  Company Number: EU-PFIZER INC-202201252846

PATIENT
  Age: 57 Year
  Sex: Female

DRUGS (1)
  1. ETANERCEPT [Suspect]
     Active Substance: ETANERCEPT
     Indication: Spondylitis
     Route: 065

REACTIONS (3)
  - Cardiac failure acute [Recovered/Resolved]
  - Dilated cardiomyopathy [Recovered/Resolved]
  - Ejection fraction decreased [Recovered/Resolved]
